FAERS Safety Report 20414558 (Version 2)
Quarter: 2022Q1

REPORT INFORMATION
  Report Type: Spontaneous
  Country: US (occurrence: US)
  Receive Date: 20220202
  Receipt Date: 20220215
  Transmission Date: 20220424
  Serious: Yes (Other)
  Sender: FDA-Public Use
  Company Number: US-CIPLA LTD.-2022US00456

PATIENT

DRUGS (6)
  1. ESCITALOPRAM [Suspect]
     Active Substance: ESCITALOPRAM OXALATE
     Indication: Depression
     Dosage: 20 MILLIGRAM, QD
     Route: 065
  2. DIAZEPAM [Concomitant]
     Active Substance: DIAZEPAM
     Indication: Insomnia
     Dosage: UNK
     Route: 065
  3. ATENOLOL [Concomitant]
     Active Substance: ATENOLOL
     Indication: Product used for unknown indication
     Dosage: 100 MILLIGRAM
     Route: 065
  4. LANSOPRAZOLE [Concomitant]
     Active Substance: LANSOPRAZOLE
     Indication: Product used for unknown indication
     Dosage: 30 MILLIGRAM
     Route: 065
  5. ALLOPURINOL [Concomitant]
     Active Substance: ALLOPURINOL
     Indication: Product used for unknown indication
     Dosage: 100 MILLIGRAM
     Route: 065
  6. SODIUM TARTRATE [Concomitant]
     Active Substance: SODIUM TARTRATE
     Indication: Product used for unknown indication
     Dosage: 2.5 MILLIGRAM
     Route: 065

REACTIONS (12)
  - Atrial fibrillation [Recovering/Resolving]
  - Arrhythmia [Recovering/Resolving]
  - Cardiac murmur [Recovering/Resolving]
  - General physical health deterioration [Recovering/Resolving]
  - Thirst [Recovering/Resolving]
  - Heart rate abnormal [Recovering/Resolving]
  - Electrocardiogram abnormal [Recovering/Resolving]
  - Asthenia [Recovering/Resolving]
  - Product dose omission in error [Unknown]
  - Insomnia [Recovering/Resolving]
  - Anxiety [Recovering/Resolving]
  - Dry mouth [Recovering/Resolving]
